FAERS Safety Report 7693992-9 (Version None)
Quarter: 2011Q3

REPORT INFORMATION
  Report Type: 
  Country: None (occurrence: None)
  Receive Date: 20110819
  Receipt Date: 20110805
  Transmission Date: 20111222
  Serious: Yes (Other)
  Sender: FDA-Public Use
  Company Number: BE-UCBSA-038630

PATIENT
  Sex: Male

DRUGS (1)
  1. NEUPRO [Suspect]
     Dosage: TITRATED TO 3 MG
     Dates: end: 20110601

REACTIONS (4)
  - GAIT DISTURBANCE [None]
  - HALLUCINATION [None]
  - MUSCLE SPASMS [None]
  - BALANCE DISORDER [None]
